FAERS Safety Report 10266292 (Version 1)
Quarter: 2014Q2

REPORT INFORMATION
  Report Type: Spontaneous
  Country: US (occurrence: US)
  Receive Date: 20140627
  Receipt Date: 20140627
  Transmission Date: 20141212
  Serious: No
  Sender: FDA-Public Use
  Company Number: US-ASTRAZENECA-2014SE05972

PATIENT
  Sex: Male

DRUGS (4)
  1. SEROQUEL [Suspect]
     Indication: BIPOLAR I DISORDER
     Route: 048
  2. SEROQUEL [Suspect]
     Indication: BIPOLAR I DISORDER
     Route: 048
  3. SEROQUEL [Suspect]
     Indication: BIPOLAR I DISORDER
     Route: 048
     Dates: start: 2013, end: 2013
  4. DEPAKOTE [Suspect]
     Route: 065

REACTIONS (8)
  - Feeling abnormal [Unknown]
  - Hair disorder [Unknown]
  - Weight increased [Unknown]
  - Blood cholesterol increased [Unknown]
  - Dry mouth [Unknown]
  - Constipation [Unknown]
  - Increased appetite [Unknown]
  - Blood triglycerides increased [Unknown]
